FAERS Safety Report 9185109 (Version 3)
Quarter: 2013Q3

REPORT INFORMATION
  Report Type: Spontaneous
  Country: JP (occurrence: JP)
  Receive Date: 20130325
  Receipt Date: 20130930
  Transmission Date: 20140515
  Serious: Yes (Other)
  Sender: FDA-Public Use
  Company Number: JP-009507513-1303JPN001256

PATIENT
  Age: 70 Year
  Sex: Male
  Weight: 62 kg

DRUGS (12)
  1. BRIDION [Suspect]
     Indication: NEUROMUSCULAR BLOCKADE REVERSAL
     Dosage: 150 MG, QD
     Route: 042
     Dates: start: 20130226, end: 20130226
  2. ESLAX [Concomitant]
     Indication: ANAESTHESIA PROCEDURE
     Dosage: 80 MG, QD
     Route: 042
     Dates: start: 20130226, end: 20130226
  3. SEVOFLURANE [Concomitant]
     Indication: ANAESTHESIA PROCEDURE
     Dosage: 60 ML, QD
     Route: 055
     Dates: start: 20130226, end: 20130226
  4. PROPOFOL [Concomitant]
     Indication: ANAESTHESIA PROCEDURE
     Dosage: TOTAL DAILY DOSE 200 MG
     Route: 042
     Dates: start: 20130226, end: 20130226
  5. FENTANYL [Concomitant]
     Indication: ANAESTHESIA PROCEDURE
     Dosage: 100 MICROGRAM, BID
     Route: 042
     Dates: start: 20130226, end: 20130226
  6. LIDOCAINE [Concomitant]
     Indication: ANAESTHESIA PROCEDURE
     Dosage: DAILY DOSE 40MG
     Route: 042
     Dates: start: 20130226, end: 20130226
  7. CEFAZOLIN [Concomitant]
     Indication: ANTIBIOTIC PROPHYLAXIS
     Dosage: TOTAL DAILY DOSE: 1 G
     Route: 042
     Dates: start: 20130226, end: 20130226
  8. NEOSYNESIN [Concomitant]
     Indication: BLOOD PRESSURE MANAGEMENT
     Dosage: 0.1 MG, QD
     Route: 042
     Dates: start: 20130226, end: 20130226
  9. EPHEDRINE [Concomitant]
     Indication: BLOOD PRESSURE MANAGEMENT
     Dosage: 4 MG, BID
     Route: 042
     Dates: start: 20120226, end: 20120226
  10. ANAPEINE [Concomitant]
     Indication: ANALGESIC THERAPY
     Dosage: TOTAL DAILY DOSE 20 ML
     Route: 058
     Dates: start: 20120226, end: 20120226
  11. SOLDEM 1 [Concomitant]
     Indication: FLUID REPLACEMENT
     Dosage: 500 ML, QD
     Route: 041
     Dates: start: 20130226, end: 20130226
  12. ISODINE [Concomitant]
     Dosage: UNK

REACTIONS (4)
  - Airway peak pressure increased [Recovered/Resolved]
  - Hypersensitivity [Recovered/Resolved]
  - Rash generalised [Recovered/Resolved]
  - Blood pressure decreased [Recovered/Resolved]
